FAERS Safety Report 7651798-0 (Version None)
Quarter: 2011Q3

REPORT INFORMATION
  Report Type: 
  Country: None (occurrence: None)
  Receive Date: 20110802
  Receipt Date: 20090304
  Transmission Date: 20111222
  Serious: Yes (Death, Hospitalization)
  Sender: FDA-Public Use
  Company Number: PHHY2008JP22722

PATIENT
  Sex: Female
  Weight: 50 kg

DRUGS (2)
  1. LETROZOLE [Suspect]
     Indication: BREAST CANCER
     Dosage: 2.5 MG, UNK
     Route: 048
     Dates: start: 20070210, end: 20071211
  2. TS 1 [Concomitant]
     Dosage: UNK
     Dates: start: 20060923, end: 20070209

REACTIONS (3)
  - PNEUMONIA ASPIRATION [None]
  - NEOPLASM PROGRESSION [None]
  - NEOPLASM MALIGNANT [None]
